FAERS Safety Report 16848998 (Version 1)
Quarter: 2019Q3

REPORT INFORMATION
  Report Type: Report from Study
  Country: TN (occurrence: TN)
  Receive Date: 20190925
  Receipt Date: 20190925
  Transmission Date: 20191005
  Serious: Yes (Death, Other)
  Sender: FDA-Public Use
  Company Number: TN-SA-2019SA262958

PATIENT
  Age: 76 Year
  Sex: Female

DRUGS (9)
  1. STELARA [Concomitant]
     Active Substance: USTEKINUMAB
  2. SEDATIF PC [Concomitant]
     Active Substance: HOMEOPATHICS
  3. IPPROTON [OMEPRAZOLE] [Concomitant]
  4. ASPEGIC [ACETYLSALICYLIC ACID] [Concomitant]
     Active Substance: ASPIRIN
  5. CLOPIDOGREL BISULFATE. [Suspect]
     Active Substance: CLOPIDOGREL BISULFATE
     Indication: ACUTE CORONARY SYNDROME
     Dosage: 75 MG, QD
     Route: 048
     Dates: start: 20190521
  6. CLOPIDOGREL BISULFATE. [Suspect]
     Active Substance: CLOPIDOGREL BISULFATE
     Indication: CORONARY ANGIOPLASTY
  7. BISOPROLOL [Concomitant]
     Active Substance: BISOPROLOL
     Dosage: UNK
  8. CLOPIDOGREL BISULFATE. [Suspect]
     Active Substance: CLOPIDOGREL BISULFATE
     Indication: STENT PLACEMENT
  9. TRIATEC [RAMIPRIL] [Concomitant]
     Active Substance: RAMIPRIL

REACTIONS (2)
  - Throat cancer [Fatal]
  - Respiratory failure [Unknown]
